FAERS Safety Report 8264143-7 (Version None)
Quarter: 2012Q2

REPORT INFORMATION
  Report Type: 
  Country: None (occurrence: None)
  Receive Date: 20120406
  Receipt Date: 20120328
  Transmission Date: 20120825
  Serious: Yes (Death, Hospitalization)
  Sender: FDA-Public Use
  Company Number: AR-AMGEN-ARGSP2012020391

PATIENT
  Age: 81 Year
  Sex: Female

DRUGS (2)
  1. FUROSEMIDE [Concomitant]
     Dosage: UNK UNK, UNK
  2. ENBREL [Suspect]
     Indication: PSORIATIC ARTHROPATHY
     Dosage: 50 MG, WEEKLY
     Route: 058
     Dates: start: 20110606, end: 20110801

REACTIONS (2)
  - SPINAL DEFORMITY [None]
  - CARDIO-RESPIRATORY ARREST [None]
